FAERS Safety Report 6057364-5 (Version None)
Quarter: 2009Q1

REPORT INFORMATION
  Report Type: 
  Country: None (occurrence: None)
  Receive Date: 20090129
  Receipt Date: 20080111
  Transmission Date: 20090719
  Serious: No
  Sender: FDA-Public Use
  Company Number: US-BRISTOL-MYERS SQUIBB COMPANY-14038624

PATIENT
  Age: 49 Year
  Weight: 67 kg

DRUGS (1)
  1. CEFZIL [Suspect]
     Indication: STAPHYLOCOCCAL INFECTION
     Dates: start: 20071123

REACTIONS (3)
  - ABDOMINAL PAIN UPPER [None]
  - NAUSEA [None]
  - VOMITING [None]
